FAERS Safety Report 21492155 (Version 1)
Quarter: 2022Q4

REPORT INFORMATION
  Report Type: Spontaneous
  Country: GB (occurrence: GB)
  Receive Date: 20221021
  Receipt Date: 20221021
  Transmission Date: 20230112
  Serious: Yes (Other)
  Sender: FDA-Public Use
  Company Number: GB-CIPLA LTD.-2022GB06209

PATIENT
  Sex: Male

DRUGS (4)
  1. ALBUTEROL [Suspect]
     Active Substance: ALBUTEROL
     Indication: Atrioventricular block complete
     Dosage: UNK
     Route: 064
  2. ALBUTEROL [Suspect]
     Active Substance: ALBUTEROL
     Indication: Heart block congenital
     Dosage: UNK, DECREASED DOSE
     Route: 064
  3. HYDROXYCHLOROQUINE [Suspect]
     Active Substance: HYDROXYCHLOROQUINE
     Dosage: UNK
     Route: 064
  4. ASPIRIN [Suspect]
     Active Substance: ASPIRIN
     Dosage: UNK
     Route: 064

REACTIONS (2)
  - Foetal exposure during pregnancy [Unknown]
  - Ventricular extrasystoles [Unknown]
